FAERS Safety Report 16766383 (Version 1)
Quarter: 2019Q3

REPORT INFORMATION
  Report Type: Spontaneous
  Country: DK (occurrence: DK)
  Receive Date: 20190903
  Receipt Date: 20190903
  Transmission Date: 20191005
  Serious: Yes (Other)
  Sender: FDA-Public Use
  Company Number: DK-009507513-1908DNK010104

PATIENT
  Age: 35 Year
  Sex: Female

DRUGS (2)
  1. BETAMETHASONE DIPROPIONATE (+) BETAMETHASONE SODIUM PHOSPHATE [Suspect]
     Active Substance: BETAMETHASONE DIPROPIONATE\BETAMETHASONE SODIUM PHOSPHATE
     Indication: PAIN
     Dosage: DOSE UNKNOWN. STRENGTH: 7 MG/ML
     Dates: start: 20170227, end: 20170227
  2. KENALOG [Suspect]
     Active Substance: TRIAMCINOLONE ACETONIDE
     Indication: PAIN
     Dosage: DOSE UNKNOWN. STRENGTH: 40 MG/ML
     Dates: start: 20170510, end: 20170807

REACTIONS (8)
  - Acne [Unknown]
  - Menstruation irregular [Not Recovered/Not Resolved]
  - Metrorrhagia [Unknown]
  - Subcutaneous abscess [Unknown]
  - Pigmentation disorder [Unknown]
  - Hirsutism [Recovering/Resolving]
  - Acne [Not Recovered/Not Resolved]
  - Insulin-like growth factor increased [Unknown]

NARRATIVE: CASE EVENT DATE: 2017
